FAERS Safety Report 9029459 (Version 1)
Quarter: 2013Q1

REPORT INFORMATION
  Report Type: Spontaneous
  Country: RO (occurrence: RO)
  Receive Date: 20130125
  Receipt Date: 20130125
  Transmission Date: 20140127
  Serious: Yes (Hospitalization)
  Sender: FDA-Public Use
  Company Number: RO-SANOFI-AVENTIS-2013SA004597

PATIENT
  Age: 53 Year
  Sex: Female

DRUGS (1)
  1. ARAVA [Suspect]
     Indication: RHEUMATOID ARTHRITIS
     Route: 065

REACTIONS (20)
  - Septic shock [Recovering/Resolving]
  - Livedo reticularis [Recovering/Resolving]
  - Rash [Recovering/Resolving]
  - Rash vesicular [Recovering/Resolving]
  - Leukocytosis [Recovering/Resolving]
  - Neutrophilia [Recovering/Resolving]
  - General physical health deterioration [Recovering/Resolving]
  - Pyrexia [Recovering/Resolving]
  - Respiratory distress [Recovering/Resolving]
  - Hypotension [Recovering/Resolving]
  - Nervous system disorder [Recovering/Resolving]
  - Chills [Recovering/Resolving]
  - Renal failure [Unknown]
  - Blood urea increased [Unknown]
  - Anuria [Unknown]
  - Blood creatinine increased [Unknown]
  - Normochromic normocytic anaemia [Unknown]
  - Hepatocellular injury [Unknown]
  - Coagulopathy [Unknown]
  - Thrombocytopenia [Unknown]
